FAERS Safety Report 12530872 (Version 1)
Quarter: 2016Q3

REPORT INFORMATION
  Report Type: Spontaneous
  Country: US (occurrence: None)
  Receive Date: 20160705
  Receipt Date: 20160705
  Transmission Date: 20161109
  Serious: No
  Sender: FDA-Public Use
  Company Number: None

PATIENT
  Age: 71 Year
  Sex: Female
  Weight: 136.08 kg

DRUGS (8)
  1. HCTZ [Concomitant]
     Active Substance: HYDROCHLOROTHIAZIDE
  2. LISINOPRIL. [Concomitant]
     Active Substance: LISINOPRIL
  3. LEVOTHYROXIN [Concomitant]
     Active Substance: LEVOTHYROXINE
  4. METOPROLOL. [Concomitant]
     Active Substance: METOPROLOL
  5. SULFAMETHOXAZOLE/METROPRIM, 800 MG MUTUAL PHARM. CO [Suspect]
     Active Substance: SULFAMETHOXAZOLE\TRIMETHOPRIM
     Indication: CELLULITIS
     Route: 048
     Dates: start: 20160627, end: 20160629
  6. IBUPROFIN [Concomitant]
  7. PROBIOTIC [Concomitant]
     Active Substance: PROBIOTICS NOS
  8. VITAMIN B12 [Concomitant]
     Active Substance: CYANOCOBALAMIN

REACTIONS (13)
  - Arthralgia [None]
  - Pyrexia [None]
  - Urinary incontinence [None]
  - Confusional state [None]
  - Dyspnoea exertional [None]
  - Viral infection [None]
  - Muscular weakness [None]
  - Movement disorder [None]
  - Chills [None]
  - Chromaturia [None]
  - Pollakiuria [None]
  - Abasia [None]
  - Fatigue [None]

NARRATIVE: CASE EVENT DATE: 20160627
